FAERS Safety Report 9405190 (Version 1)
Quarter: 2013Q3

REPORT INFORMATION
  Report Type: Spontaneous
  Country: US (occurrence: US)
  Receive Date: 20130717
  Receipt Date: 20130717
  Transmission Date: 20140515
  Serious: No
  Sender: FDA-Public Use
  Company Number: US-TEVA-419751USA

PATIENT
  Sex: Female
  Weight: 62.2 kg

DRUGS (3)
  1. PLAN B ONE-STEP [Suspect]
     Indication: POST COITAL CONTRACEPTION
     Dosage: 1.5 MILLIGRAM DAILY;
     Route: 048
  2. PLAN B ONE-STEP [Suspect]
     Dosage: 1.5 MILLIGRAM DAILY;
     Route: 048
     Dates: start: 201306, end: 201306
  3. DEPO PROVERA [Concomitant]
     Indication: CONTRACEPTION
     Dates: start: 20130501

REACTIONS (3)
  - Menstruation irregular [Recovered/Resolved]
  - Breast pain [Not Recovered/Not Resolved]
  - Exposure during breast feeding [Unknown]
